FAERS Safety Report 6679870-2 (Version None)
Quarter: 2010Q2

REPORT INFORMATION
  Report Type: 
  Country: None (occurrence: None)
  Receive Date: 20100413
  Receipt Date: 20100407
  Transmission Date: 20101027
  Serious: Yes (Other)
  Sender: FDA-Public Use
  Company Number: US-JNJFOC-20100401924

PATIENT
  Age: 70 Year
  Sex: Male
  Weight: 149.69 kg

DRUGS (4)
  1. STELARA [Suspect]
     Indication: PSORIASIS
     Route: 058
  2. STELARA [Suspect]
     Route: 058
  3. ANTI-HYPERTENSIVE [Concomitant]
     Indication: HYPERTENSION
  4. COUMADIN [Concomitant]

REACTIONS (1)
  - BONE NEOPLASM [None]
